FAERS Safety Report 6671662-3 (Version None)
Quarter: 2010Q2

REPORT INFORMATION
  Report Type: 
  Country: None (occurrence: None)
  Receive Date: 20100406
  Receipt Date: 20100406
  Transmission Date: 20101027
  Serious: Yes (Life-Threatening, Hospitalization)
  Sender: FDA-Public Use
  Company Number: None

PATIENT
  Age: 24 Year
  Sex: Female
  Weight: 76.2043 kg

DRUGS (2)
  1. SULFAMETHOXAZOLE AND TRIMETHOPRIM [Suspect]
     Indication: FURUNCLE
     Dosage: 1 DS TAB -800MG/160MG- BID PO
     Route: 048
     Dates: start: 20090119, end: 20090123
  2. SULFAMETHOXAZOLE AND TRIMETHOPRIM [Suspect]
     Indication: SKIN INFECTION
     Dosage: 1 DS TAB -800MG/160MG- BID PO
     Route: 048
     Dates: start: 20090119, end: 20090123

REACTIONS (3)
  - ANGIOEDEMA [None]
  - DRUG HYPERSENSITIVITY [None]
  - RESPIRATORY DISTRESS [None]
